FAERS Safety Report 7592043 (Version 3)
Quarter: 2012Q4

REPORT INFORMATION
  Report Type: 
  Country: US (occurrence: US)
  Receive Date: 20100917
  Receipt Date: 20121101
  Transmission Date: 20130627
  Serious: Yes (Other)
  Sender: FDA-Public Use
  Company Number: US-ASTRAZENECA-2009SE14079

PATIENT
  Age: 62 Year
  Sex: Female
  Weight: 90.7 kg

DRUGS (19)
  1. SEROQUEL XR [Suspect]
     Indication: BIPOLAR DISORDER
     Route: 048
  2. SEROQUEL XR [Suspect]
     Indication: AGITATION
     Route: 048
  3. SEROQUEL XR [Suspect]
     Indication: BIPOLAR DISORDER
     Dosage: UP TO FOUR TABLETS DAILY AS NEEDED
     Route: 048
  4. SEROQUEL XR [Suspect]
     Indication: AGITATION
     Dosage: UP TO FOUR TABLETS DAILY AS NEEDED
     Route: 048
  5. SEROQUEL XR [Suspect]
     Indication: BIPOLAR DISORDER
     Dosage: TOTAL DAILY DOSE: 150 MG
     Route: 048
  6. SEROQUEL XR [Suspect]
     Indication: AGITATION
     Dosage: TOTAL DAILY DOSE: 150 MG
     Route: 048
  7. SEROQUEL XR [Suspect]
     Indication: BIPOLAR DISORDER
     Dosage: TOTAL DAILY DOSE: 300 MG
     Route: 048
  8. SEROQUEL XR [Suspect]
     Indication: AGITATION
     Dosage: TOTAL DAILY DOSE: 300 MG
     Route: 048
  9. SEROQUEL XR [Suspect]
     Indication: BIPOLAR DISORDER
     Route: 048
     Dates: start: 2000
  10. SEROQUEL XR [Suspect]
     Indication: AGITATION
     Route: 048
     Dates: start: 2000
  11. SEROQUEL XR [Suspect]
     Indication: BIPOLAR DISORDER
     Route: 048
  12. SEROQUEL XR [Suspect]
     Indication: AGITATION
     Route: 048
  13. SEROQUEL XR [Suspect]
     Indication: BIPOLAR DISORDER
     Dosage: TWO OF THE 100 AND TWO OF THE 400 MG
     Route: 048
  14. SEROQUEL XR [Suspect]
     Indication: AGITATION
     Dosage: TWO OF THE 100 AND TWO OF THE 400 MG
     Route: 048
  15. EFFEXOR [Concomitant]
  16. GABAPENTIN [Concomitant]
  17. LEVOXYL [Concomitant]
     Indication: THYROID DISORDER
  18. LASIX [Concomitant]
  19. VALIUM [Concomitant]

REACTIONS (12)
  - Fall [Unknown]
  - Upper limb fracture [Unknown]
  - Upper limb fracture [Unknown]
  - Joint dislocation [Unknown]
  - Balance disorder [Unknown]
  - Feeling abnormal [Unknown]
  - Malaise [Unknown]
  - Stress [Unknown]
  - Drug ineffective [Unknown]
  - Bipolar disorder [Unknown]
  - Agitation [Unknown]
  - Intentional drug misuse [Unknown]
